FAERS Safety Report 9691291 (Version 1)
Quarter: 2013Q4

REPORT INFORMATION
  Report Type: Spontaneous
  Country: US (occurrence: US)
  Receive Date: 20131115
  Receipt Date: 20131115
  Transmission Date: 20140711
  Serious: Yes (Other)
  Sender: FDA-Public Use
  Company Number: US-BAYER-2013-138163

PATIENT
  Age: 37 Year
  Sex: Female
  Weight: 56 kg

DRUGS (3)
  1. YAZ [Suspect]
  2. PENICILLIN V POTASSIUM [Concomitant]
     Dosage: 500 MG, BID [TIMES] 10
  3. IBUPROFEN [Concomitant]
     Indication: MENSTRUAL CYCLE MANAGEMENT

REACTIONS (1)
  - Pulmonary embolism [None]
